FAERS Safety Report 12576839 (Version 2)
Quarter: 2016Q4

REPORT INFORMATION
  Report Type: Spontaneous
  Country: US (occurrence: US)
  Receive Date: 20160720
  Receipt Date: 20161019
  Transmission Date: 20170207
  Serious: No
  Sender: FDA-Public Use
  Company Number: US-OTSUKA-2016_010151

PATIENT
  Age: 53 Year
  Sex: Female
  Weight: 74.83 kg

DRUGS (6)
  1. REXULTI [Suspect]
     Active Substance: BREXPIPRAZOLE
     Dosage: 0.25 MG, QD
     Route: 048
     Dates: start: 20160105
  2. REXULTI [Suspect]
     Active Substance: BREXPIPRAZOLE
     Indication: BIPOLAR DISORDER
     Dosage: 1 MG, QD
     Route: 048
     Dates: end: 20160120
  3. REXULTI [Suspect]
     Active Substance: BREXPIPRAZOLE
     Dosage: 0.5 MG, QD
     Route: 048
  4. REXULTI [Suspect]
     Active Substance: BREXPIPRAZOLE
     Dosage: 0.25 MG, QD
     Route: 048
     Dates: start: 20160202
  5. LAMICTAL [Concomitant]
     Active Substance: LAMOTRIGINE
     Indication: PRODUCT USED FOR UNKNOWN INDICATION
     Dosage: 200 MG, UNK
     Route: 065
  6. SEROQUEL [Concomitant]
     Active Substance: QUETIAPINE FUMARATE
     Indication: PRODUCT USED FOR UNKNOWN INDICATION
     Dosage: UNK
     Route: 065

REACTIONS (2)
  - Off label use [Unknown]
  - Hypomania [Recovered/Resolved]

NARRATIVE: CASE EVENT DATE: 20160120
